FAERS Safety Report 5771293-3 (Version None)
Quarter: 2008Q2

REPORT INFORMATION
  Report Type: 
  Country: None (occurrence: None)
  Receive Date: 20080612
  Receipt Date: 20080612
  Transmission Date: 20081010
  Serious: No
  Sender: FDA-Public Use
  Company Number: None

PATIENT
  Sex: Female

DRUGS (1)
  1. PREVALITE [Suspect]
     Indication: HYPERCHOLESTEROLAEMIA
     Dosage: MIX 3 SCOOPFULS IN FLUID AND DRINK DAILY, DIVIDED INTO 6 DOSES
     Dates: start: 20080524

REACTIONS (2)
  - PHARMACEUTICAL PRODUCT COMPLAINT [None]
  - VOMITING [None]
